FAERS Safety Report 18692009 (Version 1)
Quarter: 2021Q1

REPORT INFORMATION
  Report Type: Spontaneous
  Country: CN (occurrence: CN)
  Receive Date: 20210102
  Receipt Date: 20210102
  Transmission Date: 20210419
  Serious: Yes (Other)
  Sender: FDA-Public Use
  Company Number: CN-PBT-000304

PATIENT
  Age: 50 Year

DRUGS (2)
  1. TACROLIMUS. [Suspect]
     Active Substance: TACROLIMUS
     Indication: ANTIINFLAMMATORY THERAPY
     Route: 065
  2. TACROLIMUS. [Suspect]
     Active Substance: TACROLIMUS
     Indication: ULCER
     Route: 065

REACTIONS (2)
  - Transplant dysfunction [Not Recovered/Not Resolved]
  - Product use in unapproved indication [Unknown]
